FAERS Safety Report 5893606-4 (Version None)
Quarter: 2008Q3

REPORT INFORMATION
  Report Type: 
  Country: None (occurrence: None)
  Receive Date: 20080923
  Receipt Date: 20070913
  Transmission Date: 20090109
  Serious: No
  Sender: FDA-Public Use
  Company Number: US-ASTRAZENECA-2007UW21693

PATIENT
  Age: 38 Year
  Sex: Female
  Weight: 69.9 kg

DRUGS (1)
  1. SEROQUEL [Suspect]
     Dosage: 25-50 MG
     Route: 048

REACTIONS (3)
  - ALOPECIA [None]
  - MUCOUS MEMBRANE DISORDER [None]
  - NASAL CONGESTION [None]
